FAERS Safety Report 18923837 (Version 1)
Quarter: 2021Q1

REPORT INFORMATION
  Report Type: Spontaneous
  Country: GB (occurrence: GB)
  Receive Date: 20210222
  Receipt Date: 20210222
  Transmission Date: 20210420
  Serious: Yes (Other)
  Sender: FDA-Public Use
  Company Number: GB-MYLANLABS-2021M1008497

PATIENT
  Age: 95 Year
  Sex: Female
  Weight: 48.53 kg

DRUGS (10)
  1. ADCAL D3 [Concomitant]
     Active Substance: CALCIUM CARBONATE\CHOLECALCIFEROL
     Indication: ILL-DEFINED DISORDER
     Dosage: UNK
  2. LAMOTRIGINE. [Suspect]
     Active Substance: LAMOTRIGINE
     Dosage: 50MG MORNING AND EVENING, ADDING AN EXTRA 25MG IN THE EVENING LAST SUNDAY
     Route: 048
     Dates: start: 20201206
  3. LANSOPRAZOL [Concomitant]
     Active Substance: LANSOPRAZOLE
     Indication: ILL-DEFINED DISORDER
     Dosage: UNK
  4. LAMOTRIGINE. [Suspect]
     Active Substance: LAMOTRIGINE
     Dosage: 25MG EVERY 2 WEEKS
  5. RAMIPRIL. [Concomitant]
     Active Substance: RAMIPRIL
     Indication: ILL-DEFINED DISORDER
     Dosage: UNK
  6. ATENOLOL. [Concomitant]
     Active Substance: ATENOLOL
     Indication: ILL-DEFINED DISORDER
     Dosage: UNK
  7. CLOPIDOGREL [Concomitant]
     Active Substance: CLOPIDOGREL BISULFATE
     Indication: ILL-DEFINED DISORDER
     Dosage: UNK
  8. LOPERAMIDE [Concomitant]
     Active Substance: LOPERAMIDE
     Indication: ILL-DEFINED DISORDER
     Dosage: UNK
  9. LAMOTRIGINE. [Suspect]
     Active Substance: LAMOTRIGINE
     Indication: PARTIAL SEIZURES
     Dosage: 25 MILLIGRAM,BACK IN DECEMBER
  10. MESTINON [Concomitant]
     Active Substance: PYRIDOSTIGMINE BROMIDE
     Indication: ILL-DEFINED DISORDER
     Dosage: UNK

REACTIONS (5)
  - Seizure [Unknown]
  - Sleep disorder [Recovering/Resolving]
  - Drug monitoring procedure not performed [Unknown]
  - Confusional state [Recovering/Resolving]
  - Dose calculation error [Unknown]

NARRATIVE: CASE EVENT DATE: 20210128
